FAERS Safety Report 9817493 (Version 1)
Quarter: 2014Q1

REPORT INFORMATION
  Report Type: Report from Study
  Country: US (occurrence: US)
  Receive Date: 20140115
  Receipt Date: 20140115
  Transmission Date: 20141002
  Serious: Yes (Other)
  Sender: FDA-Public Use
  Company Number: US-ROCHE-1324741

PATIENT
  Sex: Male

DRUGS (9)
  1. LUCENTIS [Suspect]
     Indication: RETINAL VEIN OCCLUSION
     Route: 050
  2. AVASTIN [Suspect]
     Indication: PRODUCT USED FOR UNKNOWN INDICATION
     Route: 065
  3. ALCAINE [Concomitant]
     Route: 065
  4. LIDOCAINE [Concomitant]
     Route: 065
  5. POVIDONE IODINE [Concomitant]
     Route: 065
  6. OCUVITE PRESERVISION [Concomitant]
     Dosage: ONCE PER DAY
     Route: 065
  7. ZYMAXID [Concomitant]
  8. IBUPROFEN [Concomitant]
  9. TOBREX [Concomitant]
     Route: 065

REACTIONS (19)
  - Macular oedema [Unknown]
  - Eye irritation [Unknown]
  - Retinal oedema [Unknown]
  - Vitreous floaters [Unknown]
  - Visual impairment [Unknown]
  - Retinal vein occlusion [Unknown]
  - Asthenopia [Unknown]
  - Visual acuity reduced [Unknown]
  - Intraocular lens implant [Unknown]
  - Iodine allergy [Unknown]
  - Retinal detachment [Unknown]
  - Drug ineffective [Unknown]
  - Vision blurred [Unknown]
  - Foreign body sensation in eyes [Unknown]
  - Eye pain [Unknown]
  - Posterior capsule opacification [Unknown]
  - Ocular vascular disorder [Unknown]
  - Phlebosclerosis [Unknown]
  - Retinal haemorrhage [Unknown]
